FAERS Safety Report 21784257 (Version 1)
Quarter: 2022Q4

REPORT INFORMATION
  Report Type: Spontaneous
  Country: US (occurrence: None)
  Receive Date: 20221226
  Receipt Date: 20221226
  Transmission Date: 20230113
  Serious: Yes (Life-Threatening, Hospitalization, Other)
  Sender: FDA-Public Use
  Company Number: None

PATIENT
  Age: 65 Year
  Sex: Male
  Weight: 69.75 kg

DRUGS (2)
  1. ELIQUIS [Suspect]
     Active Substance: APIXABAN
     Indication: Atrial fibrillation
     Dosage: FREQUENCY : DAILY;?
     Route: 048
  2. ELIQUIS [Concomitant]
     Active Substance: APIXABAN
     Dates: start: 20170320, end: 20220512

REACTIONS (7)
  - Internal haemorrhage [None]
  - Loss of consciousness [None]
  - Aneurysm [None]
  - Head injury [None]
  - Cerebral haemorrhage [None]
  - Therapy interrupted [None]
  - Atrial fibrillation [None]

NARRATIVE: CASE EVENT DATE: 20220512
